FAERS Safety Report 5528029-0 (Version None)
Quarter: 2007Q4

REPORT INFORMATION
  Report Type: 
  Country: None (occurrence: None)
  Receive Date: 20071121
  Receipt Date: 20071106
  Transmission Date: 20080405
  Serious: Yes (Death, Hospitalization)
  Sender: FDA-Public Use
  Company Number: 2007-167147-NL

PATIENT
  Age: 81 Year
  Sex: Female

DRUGS (8)
  1. DANAPAROID SODIUM [Suspect]
     Indication: THROMBOCYTOPENIA
     Dosage: ANTI_XA
     Dates: start: 20051218, end: 20051226
  2. NICARDIPINE HYDROCHLORIDE [Concomitant]
  3. PANTOPRAZOLE SODIUM [Concomitant]
  4. FUROSEMIDE [Concomitant]
  5. LEVOCARNITINE [Concomitant]
  6. VALPROATE SODIUM [Concomitant]
  7. PYRIDOSTIGMINE BROMIDE [Concomitant]
  8. INSULIN [Concomitant]

REACTIONS (6)
  - BRONCHITIS BACTERIAL [None]
  - HAEMATOMA [None]
  - HAEMORRHAGIC TRANSFORMATION STROKE [None]
  - ISCHAEMIC CEREBRAL INFARCTION [None]
  - LEUKOCYTOSIS [None]
  - QUADRIPARESIS [None]
